FAERS Safety Report 9266409 (Version 2)
Quarter: 2013Q3

REPORT INFORMATION
  Report Type: Report from Study
  Country: JP (occurrence: JP)
  Receive Date: 20130502
  Receipt Date: 20130819
  Transmission Date: 20140515
  Serious: Yes (Death)
  Sender: FDA-Public Use
  Company Number: JP-AMGEN-JPNCT2013030585

PATIENT
  Age: 79 Year
  Sex: Female
  Weight: 37 kg

DRUGS (29)
  1. DARBEPOETIN ALFA [Suspect]
     Indication: NEPHROGENIC ANAEMIA
     Dosage: 60 MUG, Q2WK
     Route: 058
     Dates: start: 20110217, end: 20110526
  2. DARBEPOETIN ALFA [Suspect]
     Dosage: 40 MUG, Q2WK
     Route: 058
     Dates: start: 20110609, end: 20110721
  3. DARBEPOETIN ALFA [Suspect]
     Dosage: 30 MUG, Q2WK
     Route: 058
     Dates: start: 20110804, end: 20110818
  4. DARBEPOETIN ALFA [Suspect]
     Dosage: 20 MUG, Q2WK
     Route: 058
     Dates: start: 20110901, end: 20110915
  5. DARBEPOETIN ALFA [Suspect]
     Dosage: 15 MUG, Q2WK
     Route: 058
     Dates: start: 20110929, end: 20111013
  6. DARBEPOETIN ALFA [Suspect]
     Dosage: 10 MUG, Q2WK
     Route: 058
     Dates: start: 20111027, end: 20111110
  7. DARBEPOETIN ALFA [Suspect]
     Dosage: 15 MUG, Q2WK
     Route: 058
     Dates: start: 20111124, end: 20120315
  8. DARBEPOETIN ALFA [Suspect]
     Dosage: 15 MUG, QD
     Route: 058
     Dates: start: 20120426, end: 20120426
  9. DARBEPOETIN ALFA [Suspect]
     Dosage: 20 MUG, Q2WK
     Route: 058
     Dates: start: 20120509, end: 20120524
  10. BAYASPIRIN [Concomitant]
     Dosage: UNK
     Route: 048
  11. ATELEC [Concomitant]
     Dosage: UNK
     Route: 048
  12. HERBESSER R [Concomitant]
     Dosage: UNK
     Route: 048
  13. LOCHOL [Concomitant]
     Dosage: UNK
     Route: 048
  14. ZYLORIC [Concomitant]
     Dosage: UNK
     Route: 048
  15. KREMEZIN [Concomitant]
     Indication: GLOMERULONEPHRITIS CHRONIC
     Dosage: UNK
     Route: 048
  16. LASIX [Concomitant]
     Dosage: UNK
     Route: 048
  17. MICARDIS [Concomitant]
     Dosage: UNK
     Route: 048
  18. PROTECADIN [Concomitant]
     Dosage: UNK
     Route: 048
  19. PLAVIX [Concomitant]
     Dosage: UNK
     Route: 048
  20. SIGMART [Concomitant]
     Dosage: UNK
     Route: 048
  21. JUSO [Concomitant]
     Dosage: UNK
     Route: 048
  22. LAC-B [Concomitant]
     Dosage: UNK
     Route: 048
  23. ALFAROL [Concomitant]
     Dosage: UNK
     Route: 048
  24. MAGMITT [Concomitant]
     Dosage: UNK
     Route: 048
  25. HIRUDOID [Concomitant]
     Dosage: UNK
     Route: 061
  26. POSTERISAN [Concomitant]
     Dosage: UNK
     Route: 061
  27. ZETIA [Concomitant]
     Dosage: UNK
     Route: 048
  28. FERROMIA [Concomitant]
     Dosage: UNK
     Route: 048
  29. LOCOID [Concomitant]
     Dosage: UNK
     Route: 061

REACTIONS (1)
  - Metastases to lung [Fatal]
